FAERS Safety Report 9371140 (Version 1)
Quarter: 2013Q2

REPORT INFORMATION
  Report Type: Spontaneous
  Country: US (occurrence: None)
  Receive Date: 20130626
  Receipt Date: 20130626
  Transmission Date: 20140414
  Serious: Yes (Life-Threatening)
  Sender: FDA-Public Use
  Company Number: None

PATIENT
  Age: 27 Year
  Sex: Female
  Weight: 105.69 kg

DRUGS (1)
  1. KARIVA DESOGESTRIL [Suspect]
     Indication: CONTRACEPTION
     Route: 048
     Dates: start: 20120423, end: 20130325

REACTIONS (2)
  - Pulmonary embolism [None]
  - Deep vein thrombosis [None]
